FAERS Safety Report 8825754 (Version 3)
Quarter: 2013Q1

REPORT INFORMATION
  Report Type: Spontaneous
  Country: FR (occurrence: FR)
  Receive Date: 20121004
  Receipt Date: 20130104
  Transmission Date: 20140127
  Serious: Yes (Other)
  Sender: FDA-Public Use
  Company Number: FR-TEVA-362419ISR

PATIENT
  Age: 53 Year
  Sex: Female

DRUGS (6)
  1. ETOPOSIDE [Suspect]
     Indication: ANGIOIMMUNOBLASTIC T-CELL LYMPHOMA
  2. METHOTREXATE [Suspect]
     Indication: ANGIOIMMUNOBLASTIC T-CELL LYMPHOMA
     Route: 037
  3. PREDNISONE [Suspect]
     Indication: ANGIOIMMUNOBLASTIC T-CELL LYMPHOMA
  4. BLEOMYCIN [Suspect]
     Indication: ANGIOIMMUNOBLASTIC T-CELL LYMPHOMA
  5. CYCLOPHOSPHAMID [Suspect]
     Indication: ANGIOIMMUNOBLASTIC T-CELL LYMPHOMA
  6. ADRIAMYCIN [Suspect]

REACTIONS (1)
  - Hodgkin^s disease [Recovered/Resolved]
